FAERS Safety Report 14851576 (Version 2)
Quarter: 2018Q2

REPORT INFORMATION
  Report Type: Report from Study
  Country: US (occurrence: US)
  Receive Date: 20180507
  Receipt Date: 20180621
  Transmission Date: 20180711
  Serious: Yes (Hospitalization, Other)
  Sender: FDA-Public Use
  Company Number: US-GILEAD-2018-0336236

PATIENT
  Age: 53 Year
  Sex: Female

DRUGS (5)
  1. TORSEMIDE. [Concomitant]
     Active Substance: TORSEMIDE
  2. DIGOXIN. [Concomitant]
     Active Substance: DIGOXIN
  3. TIKOSYN [Concomitant]
     Active Substance: DOFETILIDE
  4. ADEMPAS [Concomitant]
     Active Substance: RIOCIGUAT
  5. AMBRISENTAN [Suspect]
     Active Substance: AMBRISENTAN
     Indication: PULMONARY ARTERIAL HYPERTENSION
     Dosage: 10 MG, UNK
     Route: 048
     Dates: start: 20150501

REACTIONS (7)
  - Oedema [Recovered/Resolved]
  - Abdominal pain [Unknown]
  - Atrial fibrillation [Recovered/Resolved]
  - Hyponatraemia [Recovered/Resolved]
  - Abdominal distension [Recovered/Resolved]
  - Fluid overload [Recovered/Resolved]
  - Cardiac failure acute [Recovered/Resolved]

NARRATIVE: CASE EVENT DATE: 20180429
